FAERS Safety Report 8514953-3 (Version None)
Quarter: 2012Q3

REPORT INFORMATION
  Report Type: 
  Country: None (occurrence: None)
  Receive Date: 20120717
  Receipt Date: 20120228
  Transmission Date: 20120928
  Serious: Yes (Other)
  Sender: FDA-Public Use
  Company Number: US-ROCHE-1053651

PATIENT
  Sex: Female
  Weight: 164 kg

DRUGS (2)
  1. PEGASYS [Suspect]
     Indication: HEPATITIS C
     Route: 058
     Dates: start: 20111116
  2. COPEGUS [Suspect]
     Indication: HEPATITIS C
     Route: 049
     Dates: start: 20111116

REACTIONS (6)
  - DEMENTIA ALZHEIMER'S TYPE [None]
  - THYROID DISORDER [None]
  - SWELLING [None]
  - ABDOMINAL DISTENSION [None]
  - BLOOD THYROID STIMULATING HORMONE INCREASED [None]
  - DYSPNOEA [None]
